FAERS Safety Report 8270410-3 (Version None)
Quarter: 2012Q2

REPORT INFORMATION
  Report Type: 
  Country: None (occurrence: None)
  Receive Date: 20120410
  Receipt Date: 20120330
  Transmission Date: 20120825
  Serious: Yes (Hospitalization)
  Sender: FDA-Public Use
  Company Number: FR-SANOFI-AVENTIS-2012SA022580

PATIENT
  Age: 74 Year
  Sex: Male

DRUGS (5)
  1. LASIX [Suspect]
     Route: 048
  2. IRBESARTAN [Suspect]
     Route: 048
     Dates: end: 20120216
  3. ALISKIREN [Suspect]
     Route: 048
     Dates: end: 20120215
  4. LERCANIDIPINE [Suspect]
     Route: 048
     Dates: end: 20120216
  5. MEDIATENSYL [Suspect]
     Route: 048

REACTIONS (1)
  - TRANSIENT ISCHAEMIC ATTACK [None]
